FAERS Safety Report 10379503 (Version 2)
Quarter: 2014Q3

REPORT INFORMATION
  Report Type: Spontaneous
  Country: US (occurrence: US)
  Receive Date: 20140812
  Receipt Date: 20140812
  Transmission Date: 20150326
  Serious: Yes (Death, Other)
  Sender: FDA-Public Use
  Company Number: US-US-EMD SERONO, INC.-234327K09USA

PATIENT
  Sex: Female
  Weight: 132 kg

DRUGS (3)
  1. REBIF [Suspect]
     Active Substance: INTERFERON BETA-1A
     Indication: MULTIPLE SCLEROSIS
     Route: 058
     Dates: start: 20051208
  2. PREDNISONE. [Suspect]
     Active Substance: PREDNISONE
     Indication: MULTIPLE SCLEROSIS RELAPSE
     Route: 048
     Dates: start: 200708, end: 200709
  3. SOLU-MEDROL [Suspect]
     Active Substance: METHYLPREDNISOLONE SODIUM SUCCINATE
     Indication: MULTIPLE SCLEROSIS RELAPSE
     Route: 042
     Dates: start: 200708, end: 200709

REACTIONS (9)
  - Hypertension [Recovering/Resolving]
  - Multiple sclerosis relapse [Unknown]
  - Blood triglycerides increased [Recovering/Resolving]
  - Micturition urgency [Unknown]
  - Type 2 diabetes mellitus [Fatal]
  - Stress [Unknown]
  - Arrhythmia [Recovering/Resolving]
  - Urinary retention [Unknown]
  - Hypersomnia [Recovered/Resolved]

NARRATIVE: CASE EVENT DATE: 2007
